FAERS Safety Report 9399229 (Version 1)
Quarter: 2013Q3

REPORT INFORMATION
  Report Type: Spontaneous
  Country: IN (occurrence: None)
  Receive Date: 20130709
  Receipt Date: 20130709
  Transmission Date: 20140515
  Serious: Yes (Congenital Anomaly, Other)
  Sender: FDA-Public Use
  Company Number: 2013P1010815

PATIENT
  Age: 14 Month
  Sex: Male
  Weight: 2.3 kg

DRUGS (1)
  1. VALPROATE SODIUM [Suspect]
     Indication: EPILEPSY
     Route: 064

REACTIONS (15)
  - Foetal anticonvulsant syndrome [None]
  - Low birth weight baby [None]
  - Low set ears [None]
  - Dysmorphism [None]
  - Congenital nose malformation [None]
  - Congenital hand malformation [None]
  - Dysmorphism [None]
  - Dysmorphism [None]
  - Congenital foot malformation [None]
  - Congenital skin disorder [None]
  - Hypospadias [None]
  - Developmental delay [None]
  - Congenital spinal fusion [None]
  - Foetal growth restriction [None]
  - Maternal drugs affecting foetus [None]
